FAERS Safety Report 5821445-9 (Version None)
Quarter: 2008Q3

REPORT INFORMATION
  Report Type: 
  Country: None (occurrence: None)
  Receive Date: 20080724
  Receipt Date: 20080718
  Transmission Date: 20090109
  Serious: Yes (Other)
  Sender: FDA-Public Use
  Company Number: A0739179A

PATIENT
  Age: 3 Year
  Sex: Male
  Weight: 15 kg

DRUGS (1)
  1. AMOXIL [Suspect]
     Indication: PHARYNGITIS
     Dosage: 5ML TWICE PER DAY
     Route: 048
     Dates: start: 20080714

REACTIONS (2)
  - HYPOTHERMIA [None]
  - SYNCOPE [None]
